FAERS Safety Report 9015706 (Version 1)
Quarter: 2013Q1

REPORT INFORMATION
  Report Type: Spontaneous
  Country: DK (occurrence: GB)
  Receive Date: 20130116
  Receipt Date: 20130116
  Transmission Date: 20140127
  Serious: Yes (Other)
  Sender: FDA-Public Use
  Company Number: GB-FRI-1000041627

PATIENT
  Sex: Female

DRUGS (4)
  1. ESCITALOPRAM [Suspect]
     Indication: DEPRESSION
     Dosage: 10 MG
     Route: 048
     Dates: start: 201212, end: 201212
  2. ESCITALOPRAM [Suspect]
     Dosage: 20 MG
     Route: 048
     Dates: start: 201212
  3. DULOXETINE [Concomitant]
     Indication: DEPRESSION
     Dosage: 60 MG
     Dates: end: 201212
  4. DULOXETINE [Concomitant]
     Dosage: 30 MG
     Dates: start: 201212, end: 201212

REACTIONS (9)
  - Suicidal ideation [Unknown]
  - Vertigo [Unknown]
  - Migraine [Unknown]
  - Sinusitis [Unknown]
  - Tinnitus [Unknown]
  - Hyperhidrosis [Unknown]
  - Condition aggravated [Unknown]
  - Blood pressure fluctuation [Unknown]
  - Blood glucose fluctuation [Unknown]
